FAERS Safety Report 10133710 (Version 1)
Quarter: 2014Q2

REPORT INFORMATION
  Report Type: Spontaneous
  Country: US (occurrence: US)
  Receive Date: 20140428
  Receipt Date: 20140428
  Transmission Date: 20141212
  Serious: No
  Sender: FDA-Public Use
  Company Number: US-TEVA-478193USA

PATIENT
  Sex: Male
  Weight: 38.14 kg

DRUGS (19)
  1. OTFC [Suspect]
     Indication: EPIDERMOLYSIS BULLOSA
     Route: 048
  2. ZINC [Concomitant]
     Indication: SUPPLEMENTATION THERAPY
  3. PREVACID [Concomitant]
     Indication: ABDOMINAL DISCOMFORT
  4. METHADONE [Concomitant]
     Indication: PAIN
  5. IBUPROFEN [Concomitant]
     Indication: PAIN
  6. IBUPROFEN [Concomitant]
     Indication: PYREXIA
  7. NEURONTIN [Concomitant]
     Indication: PAIN
  8. VITAMIN B6 [Concomitant]
     Indication: SUPPLEMENTATION THERAPY
  9. FERROUS SULFATE [Concomitant]
     Indication: SUPPLEMENTATION THERAPY
  10. VITAMIN C [Concomitant]
     Indication: SUPPLEMENTATION THERAPY
  11. VITAMIN D [Concomitant]
     Indication: SUPPLEMENTATION THERAPY
  12. VITAMIN A WITH FOLIC ACID [Concomitant]
     Indication: SUPPLEMENTATION THERAPY
  13. MULTIVITAMIN WITH FLOURIDE [Concomitant]
     Indication: SUPPLEMENTATION THERAPY
  14. BUDESONIDE [Concomitant]
  15. ALPRAZOLAM [Concomitant]
     Indication: WOUND TREATMENT
  16. JUVEN [Concomitant]
     Indication: FEEDING DISORDER
  17. MIRALAX [Concomitant]
     Indication: CONSTIPATION
  18. COLACE [Concomitant]
     Indication: CONSTIPATION
  19. SENNA [Concomitant]
     Indication: CONSTIPATION

REACTIONS (2)
  - Off label use [Not Recovered/Not Resolved]
  - Drug administered to patient of inappropriate age [Not Recovered/Not Resolved]
